FAERS Safety Report 4914079-1 (Version None)
Quarter: 2006Q1

REPORT INFORMATION
  Report Type: 
  Country: None (occurrence: None)
  Receive Date: 20060113
  Receipt Date: 20051114
  Transmission Date: 20060701
  Serious: No
  Sender: FDA-Public Use
  Company Number: 2005SP004029

PATIENT
  Age: 59 Year
  Sex: Male
  Weight: 87.9978 kg

DRUGS (8)
  1. LUNESTA [Suspect]
     Indication: INITIAL INSOMNIA
     Dosage: 3 MG, HS, ORAL
     Route: 048
     Dates: start: 20051110, end: 20051110
  2. LUNESTA [Suspect]
     Indication: INITIAL INSOMNIA
     Dosage: 3 MG, HS, ORAL
     Route: 048
     Dates: start: 20051111, end: 20051111
  3. LUNESTA [Suspect]
     Indication: INITIAL INSOMNIA
     Dosage: 3 MG, HS, ORAL
     Route: 048
     Dates: start: 20051112, end: 20051115
  4. INDERAL LA [Concomitant]
  5. ATORVASTATIN CALCIUM [Concomitant]
  6. NEXIUM [Concomitant]
  7. WELLBUTRIN [Concomitant]
  8. DICLOFENAC [Concomitant]

REACTIONS (2)
  - DRUG INEFFECTIVE [None]
  - INITIAL INSOMNIA [None]
